FAERS Safety Report 19992305 (Version 1)
Quarter: 2021Q4

REPORT INFORMATION
  Report Type: Spontaneous
  Country: CN (occurrence: CN)
  Receive Date: 20211025
  Receipt Date: 20211025
  Transmission Date: 20220303
  Serious: Yes (Hospitalization)
  Sender: FDA-Public Use
  Company Number: CN-VIWITPHARMA-2021VWTLIT00042

PATIENT
  Age: 25 Year
  Sex: Female

DRUGS (6)
  1. SERTRALINE [Suspect]
     Active Substance: SERTRALINE HYDROCHLORIDE
     Indication: Obsessive-compulsive disorder
  2. FLUVOXAMINE [Concomitant]
     Active Substance: FLUVOXAMINE
     Indication: Anxiety disorder
     Route: 065
  3. BUPROPION [Concomitant]
     Active Substance: BUPROPION
     Indication: Anxiety disorder
     Route: 065
  4. RISPERIDONE [Concomitant]
     Active Substance: RISPERIDONE
     Indication: Anxiety disorder
     Route: 065
  5. ACETYLCYSTEINE [Interacting]
     Active Substance: ACETYLCYSTEINE
     Indication: Anxiety
     Route: 065
  6. ACETYLCYSTEINE [Interacting]
     Active Substance: ACETYLCYSTEINE
     Indication: Depression

REACTIONS (1)
  - Drug ineffective [Unknown]
